FAERS Safety Report 17317052 (Version 1)
Quarter: 2020Q1

REPORT INFORMATION
  Report Type: Spontaneous
  Country: NL (occurrence: FR)
  Receive Date: 20200124
  Receipt Date: 20200124
  Transmission Date: 20200409
  Serious: Yes (Hospitalization)
  Sender: FDA-Public Use
  Company Number: FR-FRESENIUS KABI-FK202000645

PATIENT
  Age: 23 Year
  Sex: Female

DRUGS (1)
  1. PROPOFOL (MANUFACTURER UNKNOWN) [Suspect]
     Active Substance: PROPOFOL
     Indication: DRUG ABUSE
     Route: 042
     Dates: start: 201903, end: 20191215

REACTIONS (2)
  - Loss of consciousness [Recovered/Resolved]
  - Dependence [Recovering/Resolving]

NARRATIVE: CASE EVENT DATE: 201903
